FAERS Safety Report 4531197-0 (Version None)
Quarter: 2004Q4

REPORT INFORMATION
  Report Type: 
  Country: None (occurrence: None)
  Receive Date: 20041216
  Receipt Date: 20041203
  Transmission Date: 20050328
  Serious: Yes (Disabling)
  Sender: FDA-Public Use
  Company Number: 200410627BFR

PATIENT
  Age: 48 Year
  Sex: Male

DRUGS (6)
  1. STALTOR (CERIVASTATIN) [Suspect]
     Indication: HYPERCHOLESTEROLAEMIA
     Dosage: 0.3 MG, TOTAL DAILY, ORAL
     Route: 048
     Dates: start: 19991001, end: 20010501
  2. DESURIC [Concomitant]
  3. TADENAN [Concomitant]
  4. LIPANTHYL ^BRISTOL-MYERS SQUIBB^ [Concomitant]
  5. AUGMENTIN '125' [Concomitant]
  6. BISOLVON [Concomitant]

REACTIONS (13)
  - DYSPNOEA [None]
  - ELECTROMYOGRAM ABNORMAL [None]
  - FATIGUE [None]
  - HEADACHE [None]
  - IMPAIRED WORK ABILITY [None]
  - MEMORY IMPAIRMENT [None]
  - MUSCLE CRAMP [None]
  - MUSCULAR WEAKNESS [None]
  - MYALGIA [None]
  - PAIN [None]
  - PRURITUS [None]
  - RENAL PAIN [None]
  - VISUAL DISTURBANCE [None]
